FAERS Safety Report 7996513-6 (Version None)
Quarter: 2011Q4

REPORT INFORMATION
  Report Type: 
  Country: None (occurrence: None)
  Receive Date: 20111220
  Receipt Date: 20111214
  Transmission Date: 20120403
  Serious: Yes (Other)
  Sender: FDA-Public Use
  Company Number: PHHY2011IN108955

PATIENT
  Age: 65 Year
  Sex: Male
  Weight: 74 kg

DRUGS (7)
  1. LOSARTAN POTASSIUM AND HYDROCHLOROTHIAZIDE [Concomitant]
     Indication: HYPERTENSION
     Dosage: UNK
  2. CLOPITAB-A [Concomitant]
     Dosage: UNK
  3. GLYCERYL TRINITRATE [Concomitant]
     Dosage: UNK
  4. DERIPHYLLIN [Concomitant]
     Dosage: UNK
  5. AMLODIPINE [Concomitant]
     Indication: HYPERTENSION
     Dosage: UNK
  6. METFORMIN HCL [Concomitant]
     Indication: DIABETES MELLITUS
     Dosage: UNK
  7. RANITIDINE [Suspect]
     Route: 042

REACTIONS (5)
  - METABOLIC ACIDOSIS [None]
  - RHONCHI [None]
  - ANAPHYLACTIC REACTION [None]
  - SOMNOLENCE [None]
  - UNRESPONSIVE TO STIMULI [None]
